FAERS Safety Report 22170824 (Version 2)
Quarter: 2023Q2

REPORT INFORMATION
  Report Type: Spontaneous
  Country: ES (occurrence: ES)
  Receive Date: 20230404
  Receipt Date: 20230409
  Transmission Date: 20230722
  Serious: Yes (Hospitalization, Other)
  Sender: FDA-Public Use
  Company Number: ES-LESVI-2023001087

PATIENT
  Age: 61 Year
  Sex: Female

DRUGS (7)
  1. FLECAINIDE [Suspect]
     Active Substance: FLECAINIDE
     Indication: Atrial fibrillation
     Dosage: 300 MILLIGRAM
     Route: 048
     Dates: start: 202102
  2. FLECAINIDE [Suspect]
     Active Substance: FLECAINIDE
     Indication: Cardiac failure
  3. BISOPROLOL [Concomitant]
     Active Substance: BISOPROLOL
     Indication: Product used for unknown indication
     Dosage: 10 MILLIGRAM, ONCE A DAY (10 MG EVERY 24 H)
     Route: 065
  4. EDOXABAN [Concomitant]
     Active Substance: EDOXABAN
     Indication: Product used for unknown indication
     Dosage: 60 MILLIGRAM, ONCE A DAY(60 MG EVERY 24 H)
     Route: 065
  5. FUROSEMIDE [Concomitant]
     Active Substance: FUROSEMIDE
     Indication: Product used for unknown indication
     Dosage: 40 MILLIGRAM, ONCE A DAY (40 MG EVERY 24 H)
     Route: 065
  6. SACUBITRIL\VALSARTAN [Concomitant]
     Active Substance: SACUBITRIL\VALSARTAN
     Indication: Product used for unknown indication
     Dosage: UNK, TWO TIMES A DAY(49 MG/51 Y 12 HMG EVER)
     Route: 065
  7. SPIRONOLACTONE [Concomitant]
     Active Substance: SPIRONOLACTONE
     Indication: Product used for unknown indication
     Dosage: 25 MILLIGRAM, ONCE A DAY(25 MG EVERY 24 H)
     Route: 065

REACTIONS (5)
  - Ventricular dysfunction [Recovered/Resolved]
  - Bundle branch block left [Recovered/Resolved]
  - Dyspnoea exertional [Recovering/Resolving]
  - Sinus tachycardia [Recovering/Resolving]
  - Oedema peripheral [Recovering/Resolving]

NARRATIVE: CASE EVENT DATE: 20210101
